FAERS Safety Report 10204197 (Version 2)
Quarter: 2014Q2

REPORT INFORMATION
  Report Type: Spontaneous
  Country: CN (occurrence: CN)
  Receive Date: 20140529
  Receipt Date: 20140605
  Transmission Date: 20141212
  Serious: Yes (Other)
  Sender: FDA-Public Use
  Company Number: CN-PFIZER INC-2014143048

PATIENT
  Age: 82 Year
  Sex: Female

DRUGS (22)
  1. CEFOPERAZONE SODIUM/SULBACTAM SODIUM [Suspect]
     Indication: PNEUMONIA
  2. FLUCONAZOLE [Interacting]
     Indication: PNEUMONIA
  3. CEFUROXIME [Interacting]
     Indication: INFECTION
  4. SPIRONOLACTONE [Interacting]
     Indication: DIURETIC THERAPY
  5. WARFARIN [Interacting]
     Indication: ANTICOAGULANT THERAPY
     Dosage: 4.5 MG, UNK
  6. WARFARIN [Interacting]
     Dosage: 3 MG, DAILY
  7. BUDESONIDE [Interacting]
     Dosage: 1000 UG, DAILY
     Route: 045
  8. ACETYLSALICYLIC ACID [Interacting]
     Indication: ANTIPLATELET THERAPY
  9. HEPARIN-FRACTION [Interacting]
     Indication: ANTICOAGULANT THERAPY
  10. IMIPENEM CILASTINA [Interacting]
  11. FIBRINOLYSIN [Concomitant]
  12. ALPROSTADIL [Concomitant]
  13. TANSHINONE [Concomitant]
  14. FOSINOPRIL [Concomitant]
     Indication: HYPERTENSION
  15. METOPROLOL TARTRATE [Concomitant]
     Indication: HYPERTENSION
  16. DIGOXIN [Concomitant]
     Indication: HEAT THERAPY
  17. RIBONUCLEIC ACID [Concomitant]
     Indication: IMMUNODEFICIENCY
  18. LORATADINE [Concomitant]
     Indication: PRODUCTIVE COUGH
  19. MONTELUKAST [Concomitant]
     Indication: PRODUCTIVE COUGH
  20. AMBROXOL [Concomitant]
     Indication: PRODUCTIVE COUGH
  21. HYDROCHLOROTHIAZIDE/IRBESARTAN HYDROCHLORIDE [Concomitant]
     Indication: HYPERTENSION
  22. NIFEDIPINE [Concomitant]
     Indication: HYPERTENSION

REACTIONS (15)
  - Drug interaction [Unknown]
  - Haemorrhage [Unknown]
  - International normalised ratio increased [Recovered/Resolved]
  - Pneumonia bacterial [None]
  - Pneumonia fungal [None]
  - Pneumonia [None]
  - Cough [None]
  - Wheezing [None]
  - Rales [None]
  - Heart sounds abnormal [None]
  - Oedema peripheral [None]
  - Cardiac failure [None]
  - Haemoptysis [None]
  - Drug administration error [None]
  - Drug prescribing error [None]
